FAERS Safety Report 7022204-4 (Version None)
Quarter: 2010Q3

REPORT INFORMATION
  Report Type: 
  Country: None (occurrence: None)
  Receive Date: 20100930
  Receipt Date: 20100921
  Transmission Date: 20110219
  Serious: Yes (Hospitalization)
  Sender: FDA-Public Use
  Company Number: JP-ASTRAZENECA-2010SE45171

PATIENT
  Age: 69 Year
  Sex: Male

DRUGS (3)
  1. BLOPRESS [Suspect]
     Indication: HYPERTENSION
     Route: 048
  2. VALSARTAN [Suspect]
     Route: 048
  3. VALSARTAN [Suspect]
     Dosage: DECREASED TO 10 MG/DAY
     Route: 048

REACTIONS (3)
  - OVERDOSE [None]
  - RENAL ARTERY STENOSIS [None]
  - RENAL FAILURE ACUTE [None]
